FAERS Safety Report 21951625 (Version 10)
Quarter: 2025Q4

REPORT INFORMATION
  Report Type: Spontaneous
  Country: US (occurrence: US)
  Receive Date: 20230203
  Receipt Date: 20251202
  Transmission Date: 20260117
  Serious: No
  Sender: PFIZER
  Company Number: US-PFIZER INC-PV202300021362

PATIENT
  Age: 74 Year
  Sex: Female
  Weight: 64 kg

DRUGS (3)
  1. ESTRING [Suspect]
     Active Substance: ESTRADIOL
     Indication: Vulvovaginal dryness
     Dosage: 2 MG, EVERY 3 MONTHS (USES IT FOUR TIMES A YEAR, STRENGTH 2 MG)
     Route: 067
     Dates: start: 2020
  2. ESTRING [Suspect]
     Active Substance: ESTRADIOL
     Indication: Urinary tract infection
     Dosage: 2 MG, EVERY 3 MONTHS (7.5UG, 24HR RING, INSERT 2MG INTO THE VAGINA EVERY THREE MONTHS, STRENGTH 2MG)
     Route: 067
  3. ESTRING [Suspect]
     Active Substance: ESTRADIOL
     Indication: Infection

REACTIONS (2)
  - COVID-19 [Recovering/Resolving]
  - Therapeutic response unexpected [Unknown]
